FAERS Safety Report 7892518-4 (Version None)
Quarter: 2011Q4

REPORT INFORMATION
  Report Type: 
  Country: None (occurrence: None)
  Receive Date: 20111104
  Receipt Date: 20111025
  Transmission Date: 20120403
  Serious: Yes (Hospitalization)
  Sender: FDA-Public Use
  Company Number: US-BAYER-2010-008029

PATIENT
  Age: 36 Year
  Sex: Female

DRUGS (7)
  1. YAZ [Suspect]
     Dosage: UNK
     Route: 048
     Dates: start: 20080819, end: 20090301
  2. TOPAMAX [Concomitant]
     Dosage: 100 MG, UNK
     Route: 048
  3. CELEBREX [Concomitant]
     Dosage: 200 MG, UNK
     Route: 048
  4. SINGULAIR [Concomitant]
     Dosage: 10 MG, UNK
     Route: 048
  5. CYMBALTA [Concomitant]
     Dosage: 30 MG, UNK
     Route: 048
  6. XYZAL [Concomitant]
     Dosage: 5 MG, UNK
     Route: 048
  7. XANAX [Concomitant]
     Dosage: 5 MG, UNK
     Route: 048

REACTIONS (8)
  - PAIN [None]
  - CHOLELITHIASIS [None]
  - DIARRHOEA [None]
  - NAUSEA [None]
  - VITAMIN B12 DECREASED [None]
  - ANXIETY [None]
  - VITAMIN D DECREASED [None]
  - INJURY [None]
